FAERS Safety Report 8834842 (Version 1)
Quarter: 2012Q4

REPORT INFORMATION
  Report Type: 
  Country: IT (occurrence: IT)
  Receive Date: 20121010
  Receipt Date: 20121010
  Transmission Date: 20130627
  Serious: Yes (Hospitalization)
  Sender: FDA-Public Use
  Company Number: IT-GLAXOSMITHKLINE-B0836608A

PATIENT
  Age: 74 Year
  Sex: Male

DRUGS (7)
  1. REVOLADE [Suspect]
     Indication: PLATELET COUNT DECREASED
     Dosage: 50MG Per day
     Route: 048
     Dates: start: 20110715, end: 20110806
  2. RAMIPRIL [Concomitant]
     Dosage: 2.5MG per day
     Route: 048
  3. CARVEDILOL [Concomitant]
     Dosage: 18.75MG per day
     Route: 048
  4. TAMSULOSIN HYDROCHLORIDE [Concomitant]
     Dosage: 4MG per day
     Route: 048
  5. MONOKET [Concomitant]
     Dosage: 50MG per day
     Route: 048
  6. SILODOSIN [Concomitant]
     Dosage: 8MG per day
     Route: 048
  7. ANDROCUR [Concomitant]
     Dosage: 100MG per day
     Route: 048

REACTIONS (3)
  - Acute coronary syndrome [Unknown]
  - Chest pain [Unknown]
  - Troponin increased [Unknown]
